FAERS Safety Report 12673072 (Version 3)
Quarter: 2016Q3

REPORT INFORMATION
  Report Type: Report from Study
  Country: BR (occurrence: BR)
  Receive Date: 20160822
  Receipt Date: 20160829
  Transmission Date: 20161109
  Serious: Yes (Other)
  Sender: FDA-Public Use
  Company Number: BR-JNJFOC-20160811413

PATIENT
  Sex: Female
  Weight: 48 kg

DRUGS (6)
  1. CLONAZEPAM. [Concomitant]
     Active Substance: CLONAZEPAM
     Route: 065
  2. SELOKEN [Concomitant]
     Active Substance: METOPROLOL
     Route: 065
  3. REMICADE [Suspect]
     Active Substance: INFLIXIMAB
     Indication: CROHN^S DISEASE
     Route: 042
     Dates: start: 20160813
  4. LOSARTAN. [Concomitant]
     Active Substance: LOSARTAN
     Route: 065
  5. MONOCORDIL [Concomitant]
     Active Substance: ISOSORBIDE MONONITRATE
     Route: 065
  6. REMICADE [Suspect]
     Active Substance: INFLIXIMAB
     Indication: CROHN^S DISEASE
     Route: 042
     Dates: start: 201409

REACTIONS (6)
  - Abscess [Unknown]
  - Crohn^s disease [Recovered/Resolved]
  - Weight decreased [Unknown]
  - Fistula [Unknown]
  - Anal fissure [Unknown]
  - Blood pressure abnormal [Unknown]

NARRATIVE: CASE EVENT DATE: 2016
